FAERS Safety Report 26126454 (Version 1)
Quarter: 2025Q4

REPORT INFORMATION
  Report Type: Spontaneous
  Country: US (occurrence: US)
  Receive Date: 20251205
  Receipt Date: 20251205
  Transmission Date: 20260119
  Serious: No
  Sender: BAYER HEALTHCARE PHARMACEUTICALS INC.
  Company Number: US-BAYER-2025A159955

PATIENT
  Age: 73 Year
  Sex: Male

DRUGS (6)
  1. NUBEQA [Suspect]
     Active Substance: DAROLUTAMIDE
     Indication: Prostate cancer
     Dosage: 600 MG, BID
     Dates: start: 202511
  2. LOVASTATIN [Concomitant]
     Active Substance: LOVASTATIN
  3. METOPROLOL [Concomitant]
     Active Substance: METOPROLOL
  4. TRELSTAR [Concomitant]
     Active Substance: TRIPTORELIN PAMOATE
  5. PROLIA [Concomitant]
     Active Substance: DENOSUMAB
  6. ERLEADA [Concomitant]
     Active Substance: APALUTAMIDE

REACTIONS (2)
  - Scleral hyperaemia [Not Recovered/Not Resolved]
  - Conjunctival haemorrhage [Not Recovered/Not Resolved]

NARRATIVE: CASE EVENT DATE: 20250101
